FAERS Safety Report 7758373-8 (Version None)
Quarter: 2011Q3

REPORT INFORMATION
  Report Type: 
  Country: None (occurrence: None)
  Receive Date: 20110919
  Receipt Date: 20110916
  Transmission Date: 20111222
  Serious: Yes (Other)
  Sender: FDA-Public Use
  Company Number: US-PFIZER INC-2011220421

PATIENT
  Sex: Female
  Weight: 81.633 kg

DRUGS (5)
  1. PREVACID [Concomitant]
     Indication: GASTRIC ULCER
     Dosage: UNK
  2. PREVACID [Concomitant]
     Indication: GASTROOESOPHAGEAL REFLUX DISEASE
  3. CHANTIX [Suspect]
     Indication: SMOKING CESSATION THERAPY
     Dosage: 0.5 MG, 1X/DAY
     Route: 048
     Dates: start: 20110901, end: 20110901
  4. CHANTIX [Suspect]
     Dosage: UNK
     Route: 048
     Dates: start: 20110901
  5. ATRIPLA [Concomitant]
     Indication: INFECTION
     Dosage: UNK

REACTIONS (9)
  - PARANOIA [None]
  - ABNORMAL DREAMS [None]
  - SOMNOLENCE [None]
  - DRY MOUTH [None]
  - TOBACCO USER [None]
  - NIGHTMARE [None]
  - FEELING ABNORMAL [None]
  - INSOMNIA [None]
  - NAUSEA [None]
